FAERS Safety Report 8257717-0 (Version None)
Quarter: 2012Q2

REPORT INFORMATION
  Report Type: 
  Country: None (occurrence: None)
  Receive Date: 20120404
  Receipt Date: 20120326
  Transmission Date: 20120825
  Serious: Yes (Other)
  Sender: FDA-Public Use
  Company Number: US-AMGEN-USASP2011045266

PATIENT
  Age: 57 Year
  Sex: Male

DRUGS (1)
  1. ENBREL [Suspect]
     Indication: PSORIASIS
     Dosage: 50 MG, QWK
     Route: 058
     Dates: start: 20080725, end: 20110901

REACTIONS (7)
  - PARANOIA [None]
  - CONFUSIONAL STATE [None]
  - TOOTH DISORDER [None]
  - SINUSITIS [None]
  - THYROID DISORDER [None]
  - EMOTIONAL DISTRESS [None]
  - WEIGHT INCREASED [None]
